FAERS Safety Report 10573982 (Version 3)
Quarter: 2015Q1

REPORT INFORMATION
  Report Type: Report from Study
  Country: KR (occurrence: KR)
  Receive Date: 20141110
  Receipt Date: 20150122
  Transmission Date: 20150720
  Serious: Yes (Death, Hospitalization, Other)
  Sender: FDA-Public Use
  Company Number: KR-GLAXOSMITHKLINE-KR2014GSK016315

PATIENT
  Age: 40 Year
  Sex: Male
  Weight: 70.4 kg

DRUGS (9)
  1. SODIUM BICARBONATE. [Concomitant]
     Active Substance: SODIUM BICARBONATE
     Indication: STOMATITIS
     Dosage: UNK
     Dates: start: 20141024, end: 20141106
  2. TARGIN PR [Concomitant]
     Indication: ABDOMINAL PAIN
     Dosage: UNK
     Dates: start: 20141017
  3. SYNTHROID [Concomitant]
     Active Substance: LEVOTHYROXINE SODIUM
     Indication: PAPILLARY THYROID CANCER
     Dosage: 50 UG, QD
     Route: 048
     Dates: start: 201301, end: 20141023
  4. PAZOPANIB [Suspect]
     Active Substance: PAZOPANIB
     Indication: SARCOMA
     Dosage: 800 MG, QD
     Route: 048
     Dates: start: 20140324, end: 20141023
  5. MATRIFEN [Concomitant]
     Active Substance: FENTANYL
     Indication: ABDOMINAL PAIN
     Dosage: UNK
     Route: 061
     Dates: start: 20140902
  6. KYNEX [Concomitant]
     Active Substance: SULFAMETHOXYPYRIDAZINE
     Indication: DRY EYE
     Dosage: UNK
     Dates: start: 20141103, end: 20141106
  7. CIPROBAY [Concomitant]
     Active Substance: CIPROFLOXACIN
     Indication: STOMATITIS
     Dosage: UNK
     Dates: start: 20141104, end: 20141105
  8. TARGIN PR [Concomitant]
     Dosage: UNK, QD
     Route: 048
     Dates: start: 20141021, end: 20141023
  9. TOPAMAX [Concomitant]
     Active Substance: TOPIRAMATE
     Indication: CEREBRAL INFARCTION
     Dosage: 25 MG, BID
     Route: 048
     Dates: end: 20141023

REACTIONS (2)
  - Intestinal perforation [Fatal]
  - Necrosis [Fatal]

NARRATIVE: CASE EVENT DATE: 20141024
